APPROVED DRUG PRODUCT: DEXAMETHASONE
Active Ingredient: DEXAMETHASONE
Strength: 1.5MG
Dosage Form/Route: TABLET;ORAL
Application: A040700 | Product #001
Applicant: BAUSCH HEALTH AMERICAS INC
Approved: Aug 15, 2008 | RLD: No | RS: No | Type: DISCN